FAERS Safety Report 11437814 (Version 2)
Quarter: 2015Q3

REPORT INFORMATION
  Report Type: Spontaneous
  Country: ES (occurrence: ES)
  Receive Date: 20150831
  Receipt Date: 20150831
  Transmission Date: 20151125
  Serious: Yes (Other)
  Sender: FDA-Public Use
  Company Number: PHHY2015ES101437

PATIENT
  Age: 74 Year
  Sex: Male

DRUGS (4)
  1. KREON [Concomitant]
     Active Substance: PANCRELIPASE
     Indication: PANCREATITIS CHRONIC
     Route: 065
  2. INSULIN [Concomitant]
     Active Substance: INSULIN NOS
     Indication: DIABETES MELLITUS
     Route: 065
  3. EUTIROX [Concomitant]
     Active Substance: LEVOTHYROXINE SODIUM
     Indication: HYPERTHYROIDISM
     Route: 065
  4. ULUNAR BREEZHALER [Suspect]
     Active Substance: GLYCOPYRROLATE\INDACATEROL MALEATE
     Indication: CHRONIC OBSTRUCTIVE PULMONARY DISEASE
     Dosage: 1 DF, QD
     Route: 055
     Dates: start: 20150812, end: 20150821

REACTIONS (5)
  - Haemoptysis [Recovered/Resolved]
  - Bronchitis [Recovered/Resolved]
  - Pyrexia [Unknown]
  - Choking sensation [Unknown]
  - Cough [Recovered/Resolved]

NARRATIVE: CASE EVENT DATE: 20150813
